FAERS Safety Report 21759997 (Version 1)
Quarter: 2022Q4

REPORT INFORMATION
  Report Type: Spontaneous
  Country: FR (occurrence: None)
  Receive Date: 20221221
  Receipt Date: 20221221
  Transmission Date: 20230112
  Serious: Yes (Hospitalization, Other)
  Sender: FDA-Public Use
  Company Number: FR-Orion Corporation ORION PHARMA-TREX2022-0346

PATIENT
  Age: 2 Year
  Sex: Male

DRUGS (1)
  1. METHOTREXATE [Suspect]
     Active Substance: METHOTREXATE
     Indication: Accidental exposure to product by child
     Dosage: DOSE: 2 TO 3 METHOTREXATE TABLETS OF 10 MG MAX
     Route: 048
     Dates: start: 20220922, end: 20220922

REACTIONS (3)
  - Accidental overdose [Unknown]
  - Accidental exposure to product by child [Recovered/Resolved]
  - Drug level increased [Recovered/Resolved]

NARRATIVE: CASE EVENT DATE: 20220922
